FAERS Safety Report 11747188 (Version 1)
Quarter: 2015Q4

REPORT INFORMATION
  Report Type: Spontaneous
  Country: US (occurrence: US)
  Receive Date: 20151117
  Receipt Date: 20151117
  Transmission Date: 20160304
  Serious: Yes (Other)
  Sender: FDA-Public Use
  Company Number: US-ASTRAZENECA-2015SF09370

PATIENT
  Age: 55 Year
  Sex: Female

DRUGS (1)
  1. MOVANTIK [Suspect]
     Active Substance: NALOXEGOL OXALATE
     Indication: SPINAL LAMINECTOMY
     Route: 048

REACTIONS (4)
  - Skin disorder [Unknown]
  - Pain [Unknown]
  - Drug withdrawal syndrome [Unknown]
  - Drug withdrawal syndrome [None]
